FAERS Safety Report 4516921-5 (Version None)
Quarter: 2004Q4

REPORT INFORMATION
  Report Type: 
  Country: None (occurrence: None)
  Receive Date: 20041029
  Receipt Date: 20040921
  Transmission Date: 20050328
  Serious: No
  Sender: FDA-Public Use
  Company Number: 2004-120461-NL

PATIENT
  Sex: Male

DRUGS (1)
  1. NUVARING [Suspect]
     Dates: start: 20040919, end: 20040920

REACTIONS (4)
  - CHILLS [None]
  - LYMPHADENOPATHY [None]
  - PENILE SWELLING [None]
  - PYREXIA [None]
